FAERS Safety Report 15246553 (Version 2)
Quarter: 2018Q3

REPORT INFORMATION
  Report Type: Spontaneous
  Country: GB (occurrence: GB)
  Receive Date: 20180806
  Receipt Date: 20180813
  Transmission Date: 20181010
  Serious: Yes (Other)
  Sender: FDA-Public Use
  Company Number: GB-ASCEND THERAPEUTICS-2053335

PATIENT
  Age: 46 Year
  Sex: Female

DRUGS (1)
  1. ESTROGEL [Suspect]
     Active Substance: ESTRADIOL
     Indication: HORMONE REPLACEMENT THERAPY
     Route: 062

REACTIONS (2)
  - Thrombocytopenia [Unknown]
  - Overdose [Unknown]
